FAERS Safety Report 10173429 (Version 1)
Quarter: 2014Q2

REPORT INFORMATION
  Report Type: Spontaneous
  Country: US (occurrence: US)
  Receive Date: 20140515
  Receipt Date: 20140515
  Transmission Date: 20141212
  Serious: Yes (Other)
  Sender: FDA-Public Use
  Company Number: US-BAUSCH-BL-2013-004195

PATIENT
  Age: 72 Year
  Sex: Female

DRUGS (1)
  1. BROMDAY 0.09% [Suspect]
     Indication: CATARACT OPERATION
     Dosage: 1 DROP IN RIGHT EYE, ONCE DAILY
     Route: 047
     Dates: start: 201306, end: 201307

REACTIONS (1)
  - Cystoid macular oedema [Recovering/Resolving]
